FAERS Safety Report 6588094-9 (Version None)
Quarter: 2010Q1

REPORT INFORMATION
  Report Type: 
  Country: None (occurrence: None)
  Receive Date: 20100218
  Receipt Date: 20100209
  Transmission Date: 20100710
  Serious: Yes (Other)
  Sender: FDA-Public Use
  Company Number: PHHY2010US07574

PATIENT
  Sex: Female

DRUGS (4)
  1. FEMARA [Suspect]
     Dosage: UNK
  2. CALCIUM [Concomitant]
  3. VITAMINE D3 [Concomitant]
  4. NAPROXEN [Concomitant]

REACTIONS (4)
  - JOINT SWELLING [None]
  - MASTECTOMY [None]
  - OSTEOPOROSIS [None]
  - VAGINAL HAEMORRHAGE [None]
